FAERS Safety Report 7543876-1 (Version None)
Quarter: 2011Q2

REPORT INFORMATION
  Report Type: 
  Country: None (occurrence: None)
  Receive Date: 20110613
  Receipt Date: 20110607
  Transmission Date: 20111010
  Serious: Yes (Hospitalization)
  Sender: FDA-Public Use
  Company Number: MY-ROCHE-781265

PATIENT
  Sex: Female

DRUGS (13)
  1. METHOXY POLYETHYLENE GLYCOL-EPOETIN BETA [Suspect]
     Route: 058
     Dates: start: 20110314
  2. CALCIUM CARBONATE [Concomitant]
     Dates: start: 20101216
  3. PREDNISOLONE [Concomitant]
     Dates: start: 20110401
  4. SIMVASTATIN [Concomitant]
     Dates: start: 20110322
  5. TRAMADOL HCL [Concomitant]
     Dates: start: 20110530
  6. METHOXY POLYETHYLENE GLYCOL-EPOETIN BETA [Suspect]
     Route: 058
     Dates: start: 20110214
  7. VITAMIN B COMPLEX CAP [Concomitant]
     Dates: start: 20101216
  8. FOLIC ACID [Concomitant]
     Dates: start: 20101216
  9. PRAZOSIN HCL [Concomitant]
     Dates: start: 20110530, end: 20110606
  10. ROCALTROL [Concomitant]
     Dates: start: 20110322
  11. MICARDIS [Concomitant]
     Dates: start: 20110314
  12. MICARDIS [Concomitant]
     Dates: start: 20110512
  13. SLOW-K [Concomitant]
     Dates: start: 20110301

REACTIONS (2)
  - HYPERTENSION [None]
  - INFECTION [None]
